FAERS Safety Report 10541342 (Version 6)
Quarter: 2015Q1

REPORT INFORMATION
  Report Type: Spontaneous
  Country: US (occurrence: US)
  Receive Date: 20141024
  Receipt Date: 20150217
  Transmission Date: 20150720
  Serious: Yes (Life-Threatening, Hospitalization, Disabling, Other)
  Sender: FDA-Public Use
  Company Number: US-JNJFOC-20141014476

PATIENT
  Age: 58 Year
  Sex: Male
  Weight: 78.91 kg

DRUGS (19)
  1. ALBUTEROL SULFATE. [Concomitant]
     Active Substance: ALBUTEROL SULFATE
     Route: 065
  2. ENDOCET [Concomitant]
     Active Substance: ACETAMINOPHEN\OXYCODONE HYDROCHLORIDE
     Route: 065
  3. K-DUR [Concomitant]
     Active Substance: POTASSIUM CHLORIDE
     Route: 065
  4. HYDROCODONE BITARTRATE AND ACETAMINOPHEN [Concomitant]
     Active Substance: ACETAMINOPHEN\HYDROCODONE BITARTRATE
     Route: 065
  5. ISENTRESS [Concomitant]
     Active Substance: RALTEGRAVIR POTASSIUM
     Route: 065
  6. ELIQUIS [Concomitant]
     Active Substance: APIXABAN
     Route: 065
  7. SMZ-TMP [Concomitant]
     Active Substance: SULFAMETHOXAZOLE\TRIMETHOPRIM
     Route: 065
  8. AMLODIPINE [Concomitant]
     Active Substance: AMLODIPINE BESYLATE
     Route: 065
  9. OLYSIO [Suspect]
     Active Substance: SIMEPREVIR
     Indication: PRODUCT USED FOR UNKNOWN INDICATION
     Route: 065
     Dates: start: 20140801, end: 20141006
  10. METOPROLOL [Concomitant]
     Active Substance: METOPROLOL
     Route: 065
  11. NEURONTIN [Concomitant]
     Active Substance: GABAPENTIN
     Route: 065
  12. VICODIN [Concomitant]
     Active Substance: ACETAMINOPHEN\HYDROCODONE BITARTRATE
     Route: 065
  13. FLUZONE [Concomitant]
     Active Substance: INFLUENZA A VIRUS A/CALIFORNIA/7/2009 X-179A (H1N1) ANTIGEN (FORMALDEHYDE INACTIVATED)\INFLUENZA A VIRUS A/VICTORIA/210/2009 X-187 (H3N2) ANTIGEN (FORMALDEHYDE INACTIVATED)\INFLUENZA B VIRUS B/BRISBANE/60/2008 ANTIGEN (FORMALDEHYDE INACTIVATED)
     Route: 065
     Dates: start: 20140916, end: 20140916
  14. TRUVADA [Suspect]
     Active Substance: EMTRICITABINE\TENOFOVIR DISOPROXIL FUMARATE
     Indication: PRODUCT USED FOR UNKNOWN INDICATION
     Route: 048
     Dates: start: 20130520, end: 20141006
  15. COUMARIN [Concomitant]
     Active Substance: COUMARIN
     Route: 065
  16. NICOTINE. [Concomitant]
     Active Substance: NICOTINE
     Route: 065
  17. DILTIAZEM [Concomitant]
     Active Substance: DILTIAZEM
     Route: 065
  18. SOVALDI [Suspect]
     Active Substance: SOFOSBUVIR
     Indication: PRODUCT USED FOR UNKNOWN INDICATION
     Route: 065
     Dates: start: 20140801, end: 20140906
  19. CLONIDINE. [Concomitant]
     Active Substance: CLONIDINE
     Route: 065

REACTIONS (24)
  - Hyperkalaemia [Recovered/Resolved with Sequelae]
  - Blood creatinine increased [Unknown]
  - Weight decreased [Unknown]
  - Pain in extremity [Unknown]
  - Eczema [Unknown]
  - Cough [Unknown]
  - Oedema peripheral [Unknown]
  - Coagulopathy [Unknown]
  - Dizziness postural [Unknown]
  - Dry skin [Unknown]
  - Pneumonia aspiration [Unknown]
  - Fatigue [Unknown]
  - Metabolic encephalopathy [Recovered/Resolved]
  - Systemic inflammatory response syndrome [Unknown]
  - Acute kidney injury [Not Recovered/Not Resolved]
  - Product quality issue [Unknown]
  - Rhinorrhoea [Unknown]
  - Renal failure [Unknown]
  - Anaemia [Unknown]
  - Asthenia [Unknown]
  - Off label use [Unknown]
  - Renal tubular necrosis [Unknown]
  - Nasopharyngitis [Unknown]
  - Electrolyte imbalance [Unknown]

NARRATIVE: CASE EVENT DATE: 201409
